FAERS Safety Report 12246483 (Version 2)
Quarter: 2016Q2

REPORT INFORMATION
  Report Type: Spontaneous
  Country: US (occurrence: US)
  Receive Date: 20160407
  Receipt Date: 20160519
  Transmission Date: 20160815
  Serious: Yes (Hospitalization, Other)
  Sender: FDA-Public Use
  Company Number: US-PFIZER INC-2016194944

PATIENT
  Age: 47 Year
  Sex: Female

DRUGS (4)
  1. AMPYRA [Concomitant]
     Active Substance: DALFAMPRIDINE
     Indication: MULTIPLE SCLEROSIS
     Dosage: UNK, 2X/DAY
  2. PREMPRO [Suspect]
     Active Substance: ESTROGENS, CONJUGATED\MEDROXYPROGESTERONE ACETATE
     Indication: MENOPAUSE
     Dosage: 0.625 MG-2.5MG, 1X/DAY
     Dates: start: 201510
  3. ALLEGRA-D [Concomitant]
     Active Substance: FEXOFENADINE\PSEUDOEPHEDRINE
     Indication: HOUSE DUST ALLERGY
     Dosage: UNK, 1X/DAY
  4. ALLEGRA-D [Concomitant]
     Active Substance: FEXOFENADINE\PSEUDOEPHEDRINE
     Indication: SEASONAL ALLERGY

REACTIONS (3)
  - Muscle spasms [Unknown]
  - Vaginal haemorrhage [Unknown]
  - Polyp [Unknown]
